FAERS Safety Report 8848873 (Version 1)
Quarter: 2012Q4

REPORT INFORMATION
  Report Type: Spontaneous
  Country: CZ (occurrence: None)
  Receive Date: 20121016
  Receipt Date: 20121016
  Transmission Date: 20130627
  Serious: Yes (Other)
  Sender: FDA-Public Use
  Company Number: FK201202998

PATIENT
  Age: 30 Year
  Sex: Female

DRUGS (1)
  1. INDOMETHACIN [Suspect]
     Indication: ABDOMINAL PAIN
     Dosage: Unknown,  Rectal
     Route: 054

REACTIONS (5)
  - Rash [None]
  - Henoch-Schonlein purpura [None]
  - Vomiting [None]
  - Drug hypersensitivity [None]
  - Petechiae [None]
